FAERS Safety Report 25065017 (Version 2)
Quarter: 2025Q2

REPORT INFORMATION
  Report Type: Spontaneous
  Country: US (occurrence: US)
  Receive Date: 20250311
  Receipt Date: 20250401
  Transmission Date: 20250716
  Serious: No
  Sender: BAYER
  Company Number: US-BAYER-2025A033331

PATIENT
  Age: 61 Year
  Sex: Female

DRUGS (1)
  1. ALEVE [Suspect]
     Active Substance: NAPROXEN SODIUM
     Indication: Pain
     Route: 048

REACTIONS (2)
  - Illness [Recovered/Resolved]
  - Product contamination physical [None]

NARRATIVE: CASE EVENT DATE: 20250228
